FAERS Safety Report 8873950 (Version 1)
Quarter: 2012Q4

REPORT INFORMATION
  Report Type: 
  Country: US (occurrence: US)
  Receive Date: 20121030
  Receipt Date: 20121030
  Transmission Date: 20130627
  Serious: Yes (Hospitalization)
  Sender: FDA-Public Use
  Company Number: CHPA2012US022075

PATIENT
  Age: 73 Year
  Sex: Male

DRUGS (2)
  1. MAALOX ADV MAXIMUM STRENGTH ANTACID/ANTIGAS [Suspect]
     Indication: ABDOMINAL PAIN UPPER
     Dosage: 1 TSP, 2 TIMES
     Route: 048
  2. MAALOX ADV MAXIMUM STRENGTH ANTACID/ANTIGAS [Suspect]
     Dosage: 1 TSP, 3 TIMES
     Route: 048
     Dates: start: 20101010

REACTIONS (8)
  - Jaundice [Recovered/Resolved]
  - Infection [Recovered/Resolved]
  - Cholelithiasis [Recovered/Resolved]
  - Staphylococcal infection [Recovered/Resolved]
  - Off label use [Unknown]
  - Abdominal pain upper [Unknown]
  - Incorrect storage of drug [Unknown]
  - Underdose [Unknown]
